FAERS Safety Report 16881681 (Version 1)
Quarter: 2019Q4

REPORT INFORMATION
  Report Type: Spontaneous
  Country: PL (occurrence: PL)
  Receive Date: 20191003
  Receipt Date: 20191003
  Transmission Date: 20200122
  Serious: Yes (Other)
  Sender: FDA-Public Use
  Company Number: PL-MYLANLABS-2019M1091648

PATIENT
  Age: 52 Year
  Sex: Female

DRUGS (2)
  1. EZETIMIBE. [Suspect]
     Active Substance: EZETIMIBE
     Indication: PRODUCT USED FOR UNKNOWN INDICATION
     Dosage: 10 MG, DAILY
  2. ATORVASTATIN CALCIUM. [Suspect]
     Active Substance: ATORVASTATIN CALCIUM
     Indication: PRODUCT USED FOR UNKNOWN INDICATION
     Dosage: 40 MG, DAILY

REACTIONS (8)
  - Hepatitis [Unknown]
  - Autoimmune hepatitis [Unknown]
  - Cholestasis [Unknown]
  - Fibrosis [Unknown]
  - Malaise [Unknown]
  - Weight decreased [Unknown]
  - Jaundice [Unknown]
  - Copper metabolism disorder [Unknown]
